FAERS Safety Report 20763735 (Version 1)
Quarter: 2022Q2

REPORT INFORMATION
  Report Type: Spontaneous
  Country: CA (occurrence: CA)
  Receive Date: 20220428
  Receipt Date: 20220428
  Transmission Date: 20220721
  Serious: Yes (Hospitalization)
  Sender: FDA-Public Use
  Company Number: CA-TEVA-2022-CA-2030897

PATIENT
  Age: 9 Year
  Sex: Male
  Weight: 33 kg

DRUGS (9)
  1. LEUCOVORIN [Suspect]
     Active Substance: LEUCOVORIN
     Indication: Burkitt^s lymphoma stage III
     Route: 065
  2. METHOTREXATE [Suspect]
     Active Substance: METHOTREXATE
     Indication: Burkitt^s lymphoma stage III
     Route: 039
  3. CYTARABINE [Suspect]
     Active Substance: CYTARABINE
     Indication: Burkitt^s lymphoma stage III
     Route: 065
  4. RITUXIMAB [Suspect]
     Active Substance: RITUXIMAB
     Indication: Burkitt^s lymphoma stage III
     Route: 065
  5. MORPHINE [Concomitant]
     Active Substance: MORPHINE
     Indication: Burkitt^s lymphoma stage III
  6. GRAVOL [Concomitant]
     Active Substance: DIMENHYDRINATE
  7. TYLENOL [Concomitant]
     Active Substance: ACETAMINOPHEN
  8. ZOFRAN [Concomitant]
     Active Substance: ONDANSETRON HYDROCHLORIDE
  9. gargarisme onco [Concomitant]

REACTIONS (1)
  - Aplastic anaemia [Not Recovered/Not Resolved]
